FAERS Safety Report 21704159 (Version 1)
Quarter: 2022Q4

REPORT INFORMATION
  Report Type: Spontaneous
  Country: HR (occurrence: HR)
  Receive Date: 20221209
  Receipt Date: 20221209
  Transmission Date: 20230113
  Serious: Yes (Other)
  Sender: FDA-Public Use
  Company Number: None

PATIENT
  Age: 17 Year
  Sex: Female

DRUGS (3)
  1. RISPERIDONE [Suspect]
     Active Substance: RISPERIDONE
     Indication: Product used for unknown indication
     Dosage: 1 DF = 1 TABLET , UNIT DOSE :  20 DF , FREQUENCY TIME :  1 DAY  , DURATION :  1 DAY
     Dates: start: 20221020, end: 20221020
  2. DIAZEPAM [Suspect]
     Active Substance: DIAZEPAM
     Indication: Product used for unknown indication
     Dosage: 1 DF = 1 TABLET  , UNIT DOSE : 12 DF  , FREQUENCY TIME :  1 DAY  , DURATION : 1 DAY
     Dates: start: 20221020, end: 20221020
  3. CLOZAPINE [Suspect]
     Active Substance: CLOZAPINE
     Indication: Product used for unknown indication
     Dosage: UNK , FREQUENCY TIME : 1 DAY ,  DURATION : 1 DAY
     Dates: start: 20221020, end: 20221020

REACTIONS (5)
  - Suicide attempt [Unknown]
  - Paraesthesia [Unknown]
  - Headache [Unknown]
  - Tachycardia [Unknown]
  - Vertigo [Unknown]

NARRATIVE: CASE EVENT DATE: 20221020
